FAERS Safety Report 14521350 (Version 1)
Quarter: 2018Q1

REPORT INFORMATION
  Report Type: Spontaneous
  Country: US (occurrence: US)
  Receive Date: 20180212
  Receipt Date: 20180212
  Transmission Date: 20180509
  Serious: Yes (Other)
  Sender: FDA-Public Use
  Company Number: US-PFIZER INC-2018054295

PATIENT
  Age: 60 Year
  Sex: Male
  Weight: 68.4 kg

DRUGS (4)
  1. ALPRAZOLAM. [Suspect]
     Active Substance: ALPRAZOLAM
     Dosage: 0.5 MG, DAILY
  2. ALPRAZOLAM. [Suspect]
     Active Substance: ALPRAZOLAM
     Dosage: 1 MG, DAILY (BREAKS IT INTO HALF AND THEN ONE HALF INTO QUARTERS. HE TAKES ONE QUARTER IN THE MORNI)
  3. ALPRAZOLAM. [Suspect]
     Active Substance: ALPRAZOLAM
     Indication: SLEEP DISORDER
     Dosage: 1 MG, 1X/DAY (AT NIGHT)
  4. ALPRAZOLAM. [Suspect]
     Active Substance: ALPRAZOLAM
     Dosage: 1/4 OF A TABLET IN THE MORNING AND AT LUNCH AND 1/2 OF A TABLET AT DINNER AND BEDTIME

REACTIONS (15)
  - Intentional product misuse [Unknown]
  - Condition aggravated [Unknown]
  - Hip fracture [Unknown]
  - Hypoaesthesia [Not Recovered/Not Resolved]
  - Mobility decreased [Not Recovered/Not Resolved]
  - Vertigo [Not Recovered/Not Resolved]
  - Withdrawal syndrome [Unknown]
  - Headache [Not Recovered/Not Resolved]
  - Photophobia [Not Recovered/Not Resolved]
  - Phonophobia [Not Recovered/Not Resolved]
  - Visual impairment [Not Recovered/Not Resolved]
  - Transient ischaemic attack [Unknown]
  - Speech disorder [Unknown]
  - Asthenia [Not Recovered/Not Resolved]
  - Diplopia [Unknown]

NARRATIVE: CASE EVENT DATE: 2015
